FAERS Safety Report 23655905 (Version 1)
Quarter: 2024Q1

REPORT INFORMATION
  Report Type: Other
  Country: FR (occurrence: FR)
  Receive Date: 20240321
  Receipt Date: 20240321
  Transmission Date: 20240410
  Serious: Yes (Death, Life-Threatening)
  Sender: FDA-Public Use
  Company Number: FR-MACLEODS PHARMACEUTICALS US LTD-MAC2024046146

PATIENT

DRUGS (21)
  1. TRAMADOL [Suspect]
     Active Substance: TRAMADOL\TRAMADOL HYDROCHLORIDE
     Indication: Spinal column injury
     Dosage: 100 MILLIGRAM, QD
     Route: 048
     Dates: start: 20070628, end: 20070713
  2. LEVOFLOXACIN [Suspect]
     Active Substance: LEVOFLOXACIN
     Indication: Respiratory tract infection
     Dosage: 250 MILLIGRAM, QD (DOSE: 1 DF)
     Route: 048
     Dates: start: 20070704, end: 20070713
  3. LEVOFLOXACIN [Suspect]
     Active Substance: LEVOFLOXACIN
     Dosage: 1000 MILLIGRAM, QD
     Route: 048
     Dates: start: 20070705, end: 20070713
  4. INIPOMP [Suspect]
     Active Substance: PANTOPRAZOLE SODIUM
     Indication: Product used for unknown indication
     Dosage: 40 MILLIGRAM, QD
     Route: 048
     Dates: start: 20070705
  5. FUROSEMIDE [Suspect]
     Active Substance: FUROSEMIDE
     Indication: Product used for unknown indication
     Dosage: 40 MILLIGRAM, QD
     Route: 048
     Dates: start: 20070629, end: 20070704
  6. FUROSEMIDE [Suspect]
     Active Substance: FUROSEMIDE
     Dosage: UNK UNK, QD
     Route: 048
     Dates: start: 20070704
  7. CEFTRIAXONE SODIUM [Suspect]
     Active Substance: CEFTRIAXONE SODIUM
     Indication: Respiratory tract infection
     Dosage: 1 GRAM, QD (FORM REPORTED AS INJECTABLE SOLUTION)
     Route: 042
     Dates: start: 20070709
  8. KARDEGIC [Suspect]
     Active Substance: ASPIRIN DL-LYSINE
     Indication: Prophylaxis
     Dosage: 75 MILLIGRAM, QD (75 MG POWDER FOR ORAL SOLUTION IN SACHET-DOSE)
     Route: 048
     Dates: start: 20070705
  9. TRAMADOL HYDROCHLORIDE [Suspect]
     Active Substance: TRAMADOL HYDROCHLORIDE
     Indication: Spinal column injury
     Dosage: 100 MILLIGRAM, QD
     Route: 048
     Dates: start: 20070628, end: 20070713
  10. TERBUTALINE [Concomitant]
     Active Substance: TERBUTALINE
     Indication: Respiratory tract infection
     Dosage: 1 DOSAGE FORM
     Route: 065
     Dates: start: 20070630
  11. DAFALGAN [Concomitant]
     Active Substance: ACETAMINOPHEN
     Indication: Pain
     Dosage: 1 MILLIGRAM, QID
     Route: 065
     Dates: start: 20070628
  12. CALCIUM CARBONATE\CHOLECALCIFEROL [Concomitant]
     Active Substance: CALCIUM CARBONATE\CHOLECALCIFEROL
     Indication: Spinal compression fracture
     Dosage: 2 DOSAGE FORM, QD
     Route: 048
     Dates: start: 20070628
  13. Seropram [Concomitant]
     Indication: Product used for unknown indication
     Dosage: 20 MILLIGRAM, QD
     Route: 048
     Dates: start: 20070703
  14. GINKGO [Concomitant]
     Active Substance: GINKGO
     Indication: Product used for unknown indication
     Dosage: UNK
     Route: 065
  15. PREDNISOLONE [Concomitant]
     Active Substance: PREDNISOLONE
     Indication: Product used for unknown indication
     Dosage: 60 MILLIGRAM
     Route: 048
     Dates: start: 20070713
  16. AMOXICILLIN\CLAVULANIC ACID [Concomitant]
     Active Substance: AMOXICILLIN\CLAVULANIC ACID
     Indication: Respiratory tract infection
     Dosage: 1 DOSAGE FORM, QD
     Route: 048
     Dates: start: 20070630, end: 20070704
  17. AMOXICILLIN\CLAVULANIC ACID [Concomitant]
     Active Substance: AMOXICILLIN\CLAVULANIC ACID
     Dosage: 1 DOSAGE FORM, QD
     Route: 065
     Dates: start: 20070715, end: 20070716
  18. IPRATROPIUM [Concomitant]
     Active Substance: IPRATROPIUM
     Indication: Respiratory tract infection
     Dosage: 1 DOSAGE FORM
     Route: 065
     Dates: start: 20070630
  19. Cacit D3 (Calcium carbonate) [Concomitant]
     Indication: Spinal cord compression
     Dosage: 1 DOSAGE FORM, BID (DOSE REPORTED AS 2 DOSES PER DAY)
     Route: 048
     Dates: start: 20070628
  20. CHONDROITIN SULFATE (CHICKEN) [Concomitant]
     Active Substance: CHONDROITIN SULFATE (CHICKEN)
     Indication: Polyarthritis
     Dosage: UNK
     Route: 065
  21. Cacit D3 [Colecalciferol] [Concomitant]
     Indication: Spinal cord compression
     Dosage: 1 DOSAGE FORM, BID (DOSE REPORTED AS 2 DOSES PER DAY)
     Route: 065
     Dates: start: 20070628

REACTIONS (2)
  - Acute kidney injury [Fatal]
  - Uraemic encephalopathy [Fatal]

NARRATIVE: CASE EVENT DATE: 20070711
